FAERS Safety Report 23375148 (Version 3)
Quarter: 2024Q2

REPORT INFORMATION
  Report Type: Report from Study
  Country: CA (occurrence: CA)
  Receive Date: 20240106
  Receipt Date: 20240424
  Transmission Date: 20240716
  Serious: Yes (Other)
  Sender: FDA-Public Use
  Company Number: CA-JNJFOC-20240100307

PATIENT
  Age: 14 Year
  Sex: Female

DRUGS (1)
  1. REMICADE [Suspect]
     Active Substance: INFLIXIMAB
     Indication: Colitis ulcerative
     Dosage: EXPIRY: 31-AUG-2026
     Route: 041
     Dates: start: 20160424

REACTIONS (5)
  - Haematochezia [Recovering/Resolving]
  - Ear infection [Recovered/Resolved]
  - Rash [Recovering/Resolving]
  - Frequent bowel movements [Recovering/Resolving]
  - General physical health deterioration [Recovering/Resolving]
